FAERS Safety Report 7075071-7 (Version None)
Quarter: 2010Q4

REPORT INFORMATION
  Report Type: 
  Country: None (occurrence: None)
  Receive Date: 20101029
  Receipt Date: 20100319
  Transmission Date: 20110411
  Serious: No
  Sender: FDA-Public Use
  Company Number: US-WYE-H14246010

PATIENT
  Age: 25 Year
  Sex: Male
  Weight: 81.72 kg

DRUGS (5)
  1. ALAVERT [Suspect]
     Indication: NASAL CONGESTION
     Dosage: ONE TO TWO TABLETS DAILY
     Route: 048
     Dates: start: 20100317
  2. ALAVERT [Suspect]
     Indication: SNEEZING
  3. ALAVERT [Suspect]
     Indication: EYE PRURITUS
  4. ALAVERT [Suspect]
     Indication: LACRIMATION INCREASED
  5. ALAVERT [Suspect]
     Indication: RHINORRHOEA

REACTIONS (2)
  - DRUG EFFECT DECREASED [None]
  - INTENTIONAL OVERDOSE [None]
